FAERS Safety Report 4366461-1 (Version None)
Quarter: 2004Q2

REPORT INFORMATION
  Report Type: 
  Country: None (occurrence: None)
  Receive Date: 20040527
  Receipt Date: 20040407
  Transmission Date: 20050107
  Serious: No
  Sender: FDA-Public Use
  Company Number: US-BRISTOL-MYERS SQUIBB COMPANY-12554119

PATIENT
  Age: 46 Year
  Sex: Female
  Weight: 71 kg

DRUGS (6)
  1. ERBITUX [Suspect]
     Indication: COLON CANCER
     Route: 042
     Dates: start: 20040324, end: 20040324
  2. BENADRYL [Concomitant]
     Indication: PREMEDICATION
     Dates: start: 20040324, end: 20040324
  3. DECADRON [Concomitant]
     Indication: PREMEDICATION
     Dates: start: 20040324, end: 20040324
  4. LORAZEPAM [Concomitant]
  5. PREMARIN [Concomitant]
  6. COMPAZINE [Concomitant]

REACTIONS (2)
  - RASH [None]
  - RASH PRURITIC [None]
